FAERS Safety Report 10029348 (Version 1)
Quarter: 2014Q1

REPORT INFORMATION
  Report Type: Spontaneous
  Country: US (occurrence: US)
  Receive Date: 20140321
  Receipt Date: 20140321
  Transmission Date: 20141002
  Serious: Yes (Death, Hospitalization)
  Sender: FDA-Public Use
  Company Number: PHEH2014US005306

PATIENT
  Sex: Male

DRUGS (13)
  1. EXJADE [Suspect]
     Indication: IRON OVERLOAD
     Dosage: 5 DF, UNK
  2. JAKAFI [Concomitant]
     Indication: MYELOFIBROSIS
     Dosage: UNK UKN, EVERY OTHER DAY
  3. JAKAFI [Concomitant]
     Indication: IMMUNE SYSTEM DISORDER
  4. AMBIEN [Concomitant]
     Dosage: UNK UKN, UNK
  5. MELATONIN [Concomitant]
     Dosage: UNK UKN, UNK
  6. FINASTERIDE [Concomitant]
     Dosage: UNK UKN, UNK
  7. POTASSIUM [Concomitant]
     Dosage: UNK UKN, UNK
  8. FUROSEMIDE [Concomitant]
     Dosage: UNK UKN, UNK
  9. LEVOTHYROXIN [Concomitant]
     Dosage: UNK UKN, UNK
  10. COUMADINE [Concomitant]
     Dosage: UNK UKN, UNK
  11. WARFARIN [Concomitant]
     Dosage: UNK UKN, UNK
  12. SPIRONOLACTONE [Concomitant]
     Dosage: UNK UKN, BID
  13. PREVACID [Concomitant]
     Dosage: UNK UKN, BID

REACTIONS (15)
  - Escherichia infection [Fatal]
  - Sepsis [Fatal]
  - Immune system disorder [Fatal]
  - Pneumonia [Unknown]
  - Lung infection [Unknown]
  - Cystitis [Unknown]
  - Kidney infection [Unknown]
  - Dyspnoea [Unknown]
  - Tremor [Unknown]
  - Chills [Unknown]
  - Pyrexia [Unknown]
  - Hepatic function abnormal [Unknown]
  - Diarrhoea [Unknown]
  - Platelet count decreased [Unknown]
  - Wrong technique in drug usage process [Unknown]
